FAERS Safety Report 9222737 (Version 2)
Quarter: 2013Q2

REPORT INFORMATION
  Report Type: Report from Study
  Country: DE (occurrence: DE)
  Receive Date: 20130410
  Receipt Date: 20130507
  Transmission Date: 20140414
  Serious: Yes (Other)
  Sender: FDA-Public Use
  Company Number: DE-ROCHE-1209418

PATIENT
  Sex: 0

DRUGS (2)
  1. ALTEPLASE [Suspect]
     Indication: RETINAL HAEMORRHAGE
     Dosage: 10-20 MCG
     Route: 050
  2. SULFUR HEXAFLUORIDE [Suspect]
     Indication: RETINAL HAEMORRHAGE
     Route: 050

REACTIONS (1)
  - Retinal detachment [Unknown]
